FAERS Safety Report 17498378 (Version 1)
Quarter: 2020Q1

REPORT INFORMATION
  Report Type: Other
  Country: US (occurrence: US)
  Receive Date: 20200304
  Receipt Date: 20200304
  Transmission Date: 20200409
  Serious: No
  Sender: FDA-Public Use
  Company Number: 3010849583-2020-00009

PATIENT
  Sex: Female

DRUGS (1)
  1. CANDIN [Suspect]
     Active Substance: CANDIDA ALBICANS
     Dates: end: 20190411

REACTIONS (3)
  - Injection site discolouration [None]
  - Injection site vesicles [None]
  - Injection site pain [None]
